FAERS Safety Report 11129520 (Version 1)
Quarter: 2015Q2

REPORT INFORMATION
  Report Type: Spontaneous
  Country: CH (occurrence: DE)
  Receive Date: 20150521
  Receipt Date: 20150521
  Transmission Date: 20150821
  Serious: Yes (Hospitalization)
  Sender: FDA-Public Use
  Company Number: CH-LPDUSPRD-20150358

PATIENT
  Sex: Female

DRUGS (1)
  1. FERINJECT [Suspect]
     Active Substance: FERRIC CARBOXYMALTOSE
     Dosage: 500MG/DAY FOR 3 DAYS
     Route: 041
     Dates: start: 20150415, end: 20150417

REACTIONS (13)
  - Overdose [Unknown]
  - Abdominal pain upper [Not Recovered/Not Resolved]
  - Bone pain [Unknown]
  - Serum ferritin increased [Unknown]
  - Hypotension [Unknown]
  - Decreased appetite [Not Recovered/Not Resolved]
  - Vomiting [Unknown]
  - Pyrexia [Unknown]
  - Nausea [Not Recovered/Not Resolved]
  - Chills [Unknown]
  - Hypertension [Unknown]
  - Arthralgia [Unknown]
  - Dizziness [Unknown]

NARRATIVE: CASE EVENT DATE: 20150418
